FAERS Safety Report 8646415 (Version 2)
Quarter: 2013Q2

REPORT INFORMATION
  Report Type: Report from Study
  Country: FR (occurrence: FR)
  Receive Date: 20120702
  Receipt Date: 20130529
  Transmission Date: 20140414
  Serious: Yes (Hospitalization)
  Sender: FDA-Public Use
  Company Number: FR-CELGENEUS-056-21880-12063003

PATIENT
  Age: 61 Year
  Sex: Male

DRUGS (23)
  1. REVLIMID [Suspect]
     Indication: PLASMA CELL MYELOMA
     Dosage: 25 MILLIGRAM
     Route: 048
     Dates: start: 20120529, end: 20120611
  2. REVLIMID [Suspect]
     Route: 048
     Dates: end: 20120626
  3. REVLIMID [Suspect]
     Route: 048
     Dates: start: 20120703
  4. BORTEZOMIB [Suspect]
     Indication: PLASMA CELL MYELOMA
     Route: 065
     Dates: start: 20120529, end: 20120608
  5. BORTEZOMIB [Suspect]
     Route: 065
     Dates: end: 20120626
  6. BORTEZOMIB [Suspect]
     Route: 065
     Dates: start: 20120703
  7. DEXAMETHASONE [Suspect]
     Indication: PLASMA CELL MYELOMA
     Route: 065
     Dates: start: 20120529, end: 20120609
  8. DEXAMETHASONE [Suspect]
     Route: 065
     Dates: end: 20120626
  9. DEXAMETHASONE [Suspect]
     Route: 065
     Dates: start: 20120703
  10. OXYCONTIN [Suspect]
     Indication: BONE PAIN
     Dosage: 20 MILLIGRAM
     Route: 048
     Dates: start: 20120517
  11. OXYNORM [Suspect]
     Indication: BONE PAIN
     Dosage: 5 MILLIGRAM
     Route: 048
     Dates: start: 20120517
  12. CRESTOR [Concomitant]
     Indication: HYPERCHOLESTEROLAEMIA
     Dosage: 10 MILLIGRAM
     Route: 048
     Dates: start: 2011
  13. DUPHALAC [Concomitant]
     Indication: CONSTIPATION
     Dosage: 20 GRAM
     Route: 048
     Dates: start: 20120516
  14. LOXEN [Concomitant]
     Indication: HYPERTENSION
     Dosage: 100 MILLIGRAM
     Route: 048
     Dates: start: 20120530
  15. AERIUS [Concomitant]
     Indication: HERPES ZOSTER
     Dosage: 5 MILLIGRAM
     Route: 048
     Dates: start: 20120605
  16. ORACILLINE [Concomitant]
     Indication: INFECTION PROPHYLAXIS
     Dosage: 2 INTERNATIONAL UNITS MILLIONS
     Route: 048
     Dates: start: 20120605
  17. ZELITREX [Concomitant]
     Indication: ANTIVIRAL PROPHYLAXIS
     Dosage: 1.5 MILLIGRAM
     Route: 048
     Dates: start: 20120529
  18. KARDEGIC [Concomitant]
     Indication: ARTERIAL DISORDER
     Dosage: 160 MILLIGRAM
     Route: 048
     Dates: start: 2011
  19. LOVENOX [Concomitant]
     Indication: THROMBOSIS PROPHYLAXIS
     Dosage: .4 MILLILITER
     Route: 058
     Dates: start: 20120518
  20. MYOLASTAN [Concomitant]
     Indication: MUSCLE SPASMS
     Dosage: 75 MILLIGRAM
     Route: 048
     Dates: start: 20120517
  21. XANAX [Concomitant]
     Indication: PRODUCT USED FOR UNKNOWN INDICATION
     Route: 065
  22. NEORECORMON [Concomitant]
     Indication: PRODUCT USED FOR UNKNOWN INDICATION
     Dosage: 1 DOSAGE FORMS
     Route: 065
  23. RED BLOOD CELLS [Concomitant]
     Indication: ANAEMIA
     Route: 050

REACTIONS (2)
  - Urinary retention [Recovered/Resolved]
  - Constipation [Not Recovered/Not Resolved]
